FAERS Safety Report 4427504-X (Version None)
Quarter: 2004Q3

REPORT INFORMATION
  Report Type: 
  Country: None (occurrence: None)
  Receive Date: 20040812
  Receipt Date: 20040728
  Transmission Date: 20050211
  Serious: Yes (Death)
  Sender: FDA-Public Use
  Company Number: 2004AP03625

PATIENT
  Age: 60 Year
  Sex: Male

DRUGS (12)
  1. IRESSA [Suspect]
     Indication: LUNG SQUAMOUS CELL CARCINOMA STAGE UNSPECIFIED
     Dosage: 250 MG DAILY PO
     Route: 048
     Dates: start: 20040621, end: 20040628
  2. IRESSA [Suspect]
     Indication: NON-SMALL CELL LUNG CANCER
     Dosage: 250 MG DAILY PO
     Route: 048
     Dates: start: 20040621, end: 20040628
  3. LANIRAPID [Concomitant]
  4. MS CONTIN [Concomitant]
  5. NOVAMIN [Concomitant]
  6. HALCION [Concomitant]
  7. RYTHMODAN P [Concomitant]
  8. DEPAS [Concomitant]
  9. TRYPTANOL [Concomitant]
  10. CARBOPLATIN [Concomitant]
  11. PACLITAXEL [Concomitant]
  12. RADIATION THERAPY [Concomitant]

REACTIONS (11)
  - ALANINE AMINOTRANSFERASE INCREASED [None]
  - ASPARTATE AMINOTRANSFERASE INCREASED [None]
  - BLOOD PRESSURE DECREASED [None]
  - DECREASED APPETITE [None]
  - GENERAL PHYSICAL HEALTH DETERIORATION [None]
  - HEPATIC FUNCTION ABNORMAL [None]
  - HYPOXIA [None]
  - LIVER DISORDER [None]
  - MALAISE [None]
  - MULTI-ORGAN FAILURE [None]
  - OLIGURIA [None]
